FAERS Safety Report 5742340-X (Version None)
Quarter: 2008Q2

REPORT INFORMATION
  Report Type: 
  Country: None (occurrence: None)
  Receive Date: 20080519
  Receipt Date: 20080507
  Transmission Date: 20081010
  Serious: Yes (Other)
  Sender: FDA-Public Use
  Company Number: CA-JNJFOC-20080501930

PATIENT
  Sex: Female
  Weight: 67.13 kg

DRUGS (12)
  1. REMICADE [Suspect]
     Indication: DRUG USE FOR UNKNOWN INDICATION
     Route: 042
  2. VITAMIN B-12 [Concomitant]
  3. SULCRATE [Concomitant]
  4. CELEBREX [Concomitant]
  5. FLEXERIL [Concomitant]
  6. SYNTHROID [Concomitant]
  7. IRON [Concomitant]
  8. OXYCONTIN [Concomitant]
  9. GLUCOSAMINE [Concomitant]
  10. VITAMIN E [Concomitant]
  11. ASCORBIC ACID [Concomitant]
  12. SILYBUM MARIANUM [Concomitant]

REACTIONS (1)
  - UTERINE LEIOMYOMA [None]
